FAERS Safety Report 6478202-2 (Version None)
Quarter: 2009Q4

REPORT INFORMATION
  Report Type: 
  Country: None (occurrence: None)
  Receive Date: 20091207
  Receipt Date: 20091123
  Transmission Date: 20100525
  Serious: Yes (Other)
  Sender: FDA-Public Use
  Company Number: US-CELGENEUS-163-20785-09102278

PATIENT
  Sex: Male

DRUGS (2)
  1. THALOMID [Suspect]
     Indication: MULTIPLE MYELOMA
     Route: 048
     Dates: start: 20091001
  2. THALOMID [Suspect]
     Route: 048
     Dates: start: 20091101

REACTIONS (15)
  - ABDOMINAL DISTENSION [None]
  - ASTHENIA [None]
  - CHEST PAIN [None]
  - DRY EYE [None]
  - DRY SKIN [None]
  - DYSPNOEA [None]
  - EPISTAXIS [None]
  - FAECES DISCOLOURED [None]
  - FLATULENCE [None]
  - RHINORRHOEA [None]
  - SOMNOLENCE [None]
  - TESTICULAR PAIN [None]
  - TREMOR [None]
  - VISION BLURRED [None]
  - VISUAL IMPAIRMENT [None]
